FAERS Safety Report 16566010 (Version 1)
Quarter: 2019Q3

REPORT INFORMATION
  Report Type: Spontaneous
  Country: CN (occurrence: CN)
  Receive Date: 20190712
  Receipt Date: 20190712
  Transmission Date: 20191004
  Serious: Yes (Other)
  Sender: FDA-Public Use
  Company Number: CN-SA-2019SA187936

PATIENT
  Age: 58 Year
  Sex: Male

DRUGS (3)
  1. ACETYLSALICYLIC ACID [Suspect]
     Active Substance: ASPIRIN
     Dosage: 100 MG, QD
     Route: 065
  2. CLOPIDOGREL BISULFATE. [Suspect]
     Active Substance: CLOPIDOGREL BISULFATE
     Dosage: 75 MG, QD
     Route: 065
  3. ATORVASTATIN [Suspect]
     Active Substance: ATORVASTATIN
     Dosage: 20 MG QN
     Route: 065

REACTIONS (11)
  - Chest discomfort [Unknown]
  - Dysphoria [Unknown]
  - Confusional state [Unknown]
  - Cardiogenic shock [Recovered/Resolved]
  - Dysarthria [Unknown]
  - Muscular weakness [Unknown]
  - Pyrexia [Unknown]
  - Electrocardiogram ST segment depression [Unknown]
  - Cerebral haemorrhage [Unknown]
  - Thalamus haemorrhage [Unknown]
  - Chest pain [Unknown]
